FAERS Safety Report 17354100 (Version 1)
Quarter: 2020Q1

REPORT INFORMATION
  Report Type: Spontaneous
  Country: US (occurrence: US)
  Receive Date: 20200130
  Receipt Date: 20200130
  Transmission Date: 20200409
  Serious: No
  Sender: FDA-Public Use
  Company Number: None

PATIENT
  Sex: Female
  Weight: 85.95 kg

DRUGS (5)
  1. JADENU [Suspect]
     Active Substance: DEFERASIROX
     Indication: ACUTE MYELOID LEUKAEMIA
     Route: 048
     Dates: start: 20190919, end: 20200130
  2. ZOLOFT [Concomitant]
     Active Substance: SERTRALINE HYDROCHLORIDE
  3. LISINOPRIL 10MG [Concomitant]
     Active Substance: LISINOPRIL
  4. GABAPENTIN 100MG [Concomitant]
     Active Substance: GABAPENTIN
  5. TRAMADOL 50MG [Concomitant]
     Active Substance: TRAMADOL

REACTIONS (1)
  - Abdominal discomfort [None]
